FAERS Safety Report 8960238 (Version 1)
Quarter: 2012Q4

REPORT INFORMATION
  Report Type: 
  Country: US (occurrence: US)
  Receive Date: 20121211
  Receipt Date: 20121211
  Transmission Date: 20130627
  Serious: Yes (Hospitalization)
  Sender: FDA-Public Use
  Company Number: US-PFIZER INC-2012301998

PATIENT
  Age: 43 Year
  Sex: Male

DRUGS (1)
  1. TIGECYCLINE [Suspect]
     Indication: OSTEOMYELITIS
     Dosage: UNK

REACTIONS (2)
  - Psychotic disorder [Recovered/Resolved]
  - Paranoia [Recovered/Resolved]
